FAERS Safety Report 7688074-6 (Version None)
Quarter: 2011Q3

REPORT INFORMATION
  Report Type: 
  Country: None (occurrence: None)
  Receive Date: 20110817
  Receipt Date: 20110816
  Transmission Date: 20111222
  Serious: Yes (Death, Hospitalization)
  Sender: FDA-Public Use
  Company Number: US-BRISTOL-MYERS SQUIBB COMPANY-15436355

PATIENT
  Age: 62 Year
  Sex: Male

DRUGS (10)
  1. BENADRYL [Concomitant]
     Indication: RASH
     Route: 048
     Dates: start: 20101114
  2. OXYCODONE HCL [Concomitant]
     Indication: PAIN
     Route: 048
     Dates: start: 20100902
  3. BENADRYL [Concomitant]
     Indication: PRURITUS
     Route: 048
     Dates: start: 20101114
  4. OXYCONTIN [Concomitant]
     Indication: PAIN
     Route: 048
     Dates: start: 20100902
  5. DILANTIN [Concomitant]
     Route: 048
     Dates: start: 20070101
  6. IPILIMUMAB [Suspect]
     Indication: MALIGNANT MELANOMA
     Dosage: DAILY AS NECESSARY
     Route: 042
     Dates: start: 20101102, end: 20101123
  7. DIGOXIN [Concomitant]
     Route: 048
     Dates: start: 20070101
  8. EFFEXOR [Concomitant]
     Route: 048
     Dates: start: 20070101
  9. ATENOLOL [Concomitant]
     Dosage: DAILY
     Route: 048
     Dates: start: 20070101
  10. ADVIL LIQUI-GELS [Concomitant]
     Indication: DISCOMFORT
     Route: 048
     Dates: start: 20100910

REACTIONS (3)
  - MALIGNANT MELANOMA [None]
  - DIARRHOEA [None]
  - DEHYDRATION [None]
